FAERS Safety Report 7350185-2 (Version None)
Quarter: 2011Q1

REPORT INFORMATION
  Report Type: 
  Country: None (occurrence: None)
  Receive Date: 20110314
  Receipt Date: 20110303
  Transmission Date: 20110831
  Serious: Yes (Hospitalization)
  Sender: FDA-Public Use
  Company Number: B0704300A

PATIENT
  Age: 50 Year
  Sex: Male

DRUGS (6)
  1. VIREAD [Suspect]
     Indication: HIV INFECTION
     Route: 065
  2. REYATAZ [Suspect]
     Indication: HIV INFECTION
     Route: 065
  3. EFAVIRENZ [Suspect]
     Indication: HIV INFECTION
     Route: 065
     Dates: start: 20050101
  4. RETROVIR [Suspect]
     Indication: HIV INFECTION
     Route: 048
     Dates: start: 20050101
  5. ZIAGEN [Suspect]
     Indication: HIV INFECTION
     Route: 048
  6. EPIVIR [Suspect]
     Indication: HIV INFECTION
     Route: 048
     Dates: start: 20050101

REACTIONS (6)
  - HALLUCINATION [None]
  - RENAL IMPAIRMENT [None]
  - NEPHROPATHY [None]
  - RENAL TUBULAR DISORDER [None]
  - BLOOD CREATININE INCREASED [None]
  - GRANULOMA [None]
